FAERS Safety Report 5607472-5 (Version None)
Quarter: 2008Q1

REPORT INFORMATION
  Report Type: 
  Country: None (occurrence: None)
  Receive Date: 20080125
  Receipt Date: 19970310
  Transmission Date: 20080703
  Serious: Yes (Other)
  Sender: FDA-Public Use
  Company Number: 2008S1000529

PATIENT
  Sex: Female

DRUGS (1)
  1. PHOSPHOSODA FLAVOR NOT SPECIFIED [Suspect]
     Dosage: PO
     Route: 048

REACTIONS (4)
  - ANAEMIA [None]
  - HYPERSENSITIVITY [None]
  - RENAL FAILURE [None]
  - SWELLING [None]
